FAERS Safety Report 4284974-8 (Version None)
Quarter: 2004Q1

REPORT INFORMATION
  Report Type: 
  Country: None (occurrence: None)
  Receive Date: 20040202
  Receipt Date: 20040126
  Transmission Date: 20041129
  Serious: Yes (Other)
  Sender: FDA-Public Use
  Company Number: 200314768BCC

PATIENT
  Age: 76 Year
  Sex: Female
  Weight: 63.5036 kg

DRUGS (7)
  1. ALEVE [Suspect]
     Indication: ARTHRALGIA
     Dosage: SEE IMAGE, ORAL
     Route: 048
     Dates: start: 20031201
  2. CALCIUM [Concomitant]
  3. FOSAMAX [Concomitant]
  4. CARDIZEM [Concomitant]
  5. FISH OIL [Concomitant]
  6. LEXAPRO [Concomitant]
  7. ZYPREXA [Concomitant]

REACTIONS (6)
  - ANXIETY [None]
  - ARTHRALGIA [None]
  - ASTHENIA [None]
  - DRUG INEFFECTIVE [None]
  - TRANSIENT ISCHAEMIC ATTACK [None]
  - TREMOR [None]
